FAERS Safety Report 7605382-5 (Version None)
Quarter: 2011Q3

REPORT INFORMATION
  Report Type: 
  Country: None (occurrence: None)
  Receive Date: 20110712
  Receipt Date: 20110712
  Transmission Date: 20111222
  Serious: Yes (Hospitalization)
  Sender: FDA-Public Use
  Company Number: None

PATIENT
  Age: 81 Year
  Sex: Male
  Weight: 130 kg

DRUGS (1)
  1. RISPERIDONE [Suspect]
     Indication: DEMENTIA
     Dosage: 3 MG EVERY DAY PO
     Route: 048
     Dates: start: 20110615, end: 20110624

REACTIONS (12)
  - SPEECH DISORDER [None]
  - DISORIENTATION [None]
  - PAIN [None]
  - SKIN DISCOLOURATION [None]
  - CONDITION AGGRAVATED [None]
  - PARANOIA [None]
  - FEELING ABNORMAL [None]
  - LETHARGY [None]
  - CONFUSIONAL STATE [None]
  - MENTAL STATUS CHANGES [None]
  - HALLUCINATION [None]
  - MEMORY IMPAIRMENT [None]
